FAERS Safety Report 8223470-X (Version None)
Quarter: 2012Q1

REPORT INFORMATION
  Report Type: 
  Country: None (occurrence: None)
  Receive Date: 20120307
  Receipt Date: 20101004
  Transmission Date: 20120608
  Serious: Yes (Other)
  Sender: FDA-Public Use
  Company Number: PHHY2010US60578

PATIENT
  Sex: Male

DRUGS (6)
  1. METFORMIN HCL [Concomitant]
  2. AFINITOR [Suspect]
     Dosage: 10 MG
  3. XANAX [Concomitant]
  4. VITAMIN A [Concomitant]
  5. HUMALOG [Concomitant]
  6. LANTUS [Concomitant]

REACTIONS (1)
  - BLOOD GLUCOSE INCREASED [None]
